FAERS Safety Report 21609910 (Version 1)
Quarter: 2022Q4

REPORT INFORMATION
  Report Type: Spontaneous
  Country: US (occurrence: None)
  Receive Date: 20221117
  Receipt Date: 20221117
  Transmission Date: 20230112
  Serious: Yes (Hospitalization, Disabling)
  Sender: FDA-Public Use
  Company Number: None

PATIENT
  Age: 30 Year
  Sex: Male
  Weight: 108 kg

DRUGS (2)
  1. ARIPIPRAZOLE [Suspect]
     Active Substance: ARIPIPRAZOLE
     Indication: Bipolar disorder
     Dosage: OTHER QUANTITY : 30 TABLET(S);?FREQUENCY : DAILY;?
     Route: 048
     Dates: start: 20221015, end: 20221117
  2. ARIPIPRAZOLE [Suspect]
     Active Substance: ARIPIPRAZOLE
     Indication: Schizophrenia

REACTIONS (17)
  - Product taste abnormal [None]
  - Loss of libido [None]
  - Blood testosterone decreased [None]
  - Muscular weakness [None]
  - Muscle spasms [None]
  - Headache [None]
  - Vomiting [None]
  - Hyperactive pharyngeal reflex [None]
  - Bipolar disorder [None]
  - Schizophrenia [None]
  - Mood swings [None]
  - Anger [None]
  - Emotional distress [None]
  - Erectile dysfunction [None]
  - Azoospermia [None]
  - Weight increased [None]
  - Gynaecomastia [None]

NARRATIVE: CASE EVENT DATE: 20221015
